FAERS Safety Report 5690742-2 (Version None)
Quarter: 2008Q2

REPORT INFORMATION
  Report Type: 
  Country: None (occurrence: None)
  Receive Date: 20080401
  Receipt Date: 20080321
  Transmission Date: 20081010
  Serious: Yes (Life-Threatening, Hospitalization, Other)
  Sender: FDA-Public Use
  Company Number: IT-ELI_LILLY_AND_COMPANY-IT200803002207

PATIENT
  Sex: Female

DRUGS (7)
  1. CYMBALTA [Suspect]
     Indication: DEPRESSION
     Dosage: 60 MG, DAILY (1/D)
     Route: 048
     Dates: start: 20080225, end: 20080226
  2. METFORMIN HCL [Concomitant]
     Dosage: 1700 MG, UNK
     Route: 048
     Dates: start: 20070711, end: 20080226
  3. REPAGLINIDE [Concomitant]
     Dosage: 3 MG, UNK
     Route: 048
     Dates: start: 20070711, end: 20080226
  4. TICLOPIDINE HCL [Concomitant]
     Dosage: 500 MG, UNK
     Route: 048
     Dates: start: 20080218, end: 20080226
  5. TRIATEC [Concomitant]
     Dosage: 5 MG, UNK
     Route: 048
  6. TRIATEC [Concomitant]
     Dosage: 25 MG, UNK
     Route: 048
  7. LOBIVON [Concomitant]
     Route: 048

REACTIONS (3)
  - BLOOD LACTATE DEHYDROGENASE INCREASED [None]
  - HEPATITIS ACUTE [None]
  - IDIOSYNCRATIC DRUG REACTION [None]
